FAERS Safety Report 5472024-7 (Version None)
Quarter: 2007Q3

REPORT INFORMATION
  Report Type: 
  Country: None (occurrence: None)
  Receive Date: 20070928
  Receipt Date: 20070918
  Transmission Date: 20080115
  Serious: Yes (Life-Threatening)
  Sender: FDA-Public Use
  Company Number: US-PFIZER INC-2007077453

PATIENT
  Sex: Female
  Weight: 86 kg

DRUGS (6)
  1. GEODON [Suspect]
     Indication: BIPOLAR DISORDER
     Dosage: DAILY DOSE:120MG
     Route: 048
     Dates: start: 20070709, end: 20070907
  2. LAMICTAL [Concomitant]
  3. CELEXA [Concomitant]
  4. COGENTIN [Concomitant]
  5. ABILIFY [Concomitant]
  6. ATENOLOL [Concomitant]

REACTIONS (2)
  - CONVULSION [None]
  - LOSS OF CONSCIOUSNESS [None]
